FAERS Safety Report 4310143-9 (Version None)
Quarter: 2004Q1

REPORT INFORMATION
  Report Type: 
  Country: None (occurrence: None)
  Receive Date: 20040301
  Receipt Date: 20040121
  Transmission Date: 20041129
  Serious: No
  Sender: FDA-Public Use
  Company Number: WAES 0401USA01604

PATIENT
  Sex: 0

DRUGS (2)
  1. ZETIA [Suspect]
     Indication: HYPERCHOLESTEROLAEMIA
     Dosage: 10 MG/DAILY/PO
     Route: 048
  2. AMIODARONE [Suspect]

REACTIONS (1)
  - TOTAL LUNG CAPACITY DECREASED [None]
